FAERS Safety Report 6151920-1 (Version None)
Quarter: 2009Q2

REPORT INFORMATION
  Report Type: 
  Country: None (occurrence: None)
  Receive Date: 20090410
  Receipt Date: 20090403
  Transmission Date: 20091009
  Serious: Yes (Life-Threatening, Other)
  Sender: FDA-Public Use
  Company Number: JP-MERCK-0807USA01634

PATIENT
  Age: 83 Year
  Sex: Female

DRUGS (7)
  1. ZETIA [Suspect]
     Indication: HYPERLIPIDAEMIA
     Route: 048
     Dates: start: 20080603, end: 20080623
  2. HYZAAR [Suspect]
     Indication: HYPERTENSION
     Route: 048
     Dates: start: 20080109, end: 20080625
  3. LOXOPROFEN [Concomitant]
     Route: 065
     Dates: end: 20080625
  4. CHLORPHENESIN [Concomitant]
     Route: 065
     Dates: end: 20080625
  5. NIFEDIPINE [Concomitant]
     Route: 065
     Dates: start: 20030403, end: 20080625
  6. ENALAPRIL MALEATE [Concomitant]
     Route: 065
     Dates: start: 20050609, end: 20080625
  7. ZYLORIC [Suspect]
     Indication: HYPERURICAEMIA
     Route: 048
     Dates: start: 20080507, end: 20080625

REACTIONS (4)
  - BLOOD PRESSURE DECREASED [None]
  - DRUG ERUPTION [None]
  - PYREXIA [None]
  - RENAL FAILURE ACUTE [None]
